FAERS Safety Report 6395431-7 (Version None)
Quarter: 2009Q4

REPORT INFORMATION
  Report Type: 
  Country: None (occurrence: None)
  Receive Date: 20091009
  Receipt Date: 20090929
  Transmission Date: 20100525
  Serious: Yes (Other)
  Sender: FDA-Public Use
  Company Number: GB-PFIZER INC-2008050477

PATIENT
  Age: 45 Year

DRUGS (3)
  1. METHYLPREDNISOLONE SODIUM SUCCINATE [Suspect]
     Route: 042
  2. CYCLOPHOSPHAMIDE [Suspect]
     Route: 042
  3. RITUXIMAB [Suspect]
     Dosage: 375 MG/M2  X 4 WEEKLY

REACTIONS (1)
  - RENAL NECROSIS [None]
